FAERS Safety Report 9104674 (Version 1)
Quarter: 2013Q1

REPORT INFORMATION
  Report Type: Spontaneous
  Country: FR (occurrence: FR)
  Receive Date: 20130219
  Receipt Date: 20130219
  Transmission Date: 20140127
  Serious: Yes (Life-Threatening, Hospitalization)
  Sender: FDA-Public Use
  Company Number: FR-AMGEN-FRASP2013009462

PATIENT
  Age: 64 Year
  Sex: Female
  Weight: 51 kg

DRUGS (18)
  1. ENBREL [Suspect]
     Indication: RHEUMATOID ARTHRITIS
     Dosage: 50 MG, WEEKLY
     Route: 058
     Dates: start: 200803, end: 201006
  2. METHOTREXATE SODIUM [Suspect]
     Indication: RHEUMATOID ARTHRITIS
     Dosage: UNK, FOR YEARS
  3. METHOTREXATE SODIUM [Suspect]
     Dosage: 15 MG, WEEKLY
     Route: 048
     Dates: start: 20100818, end: 201012
  4. MABTHERA [Suspect]
     Indication: RHEUMATOID ARTHRITIS
     Dosage: 1 G, Q2WK
     Route: 042
     Dates: start: 20100915, end: 20100929
  5. ARAVA [Suspect]
     Indication: RHEUMATOID ARTHRITIS
     Dosage: 10 THEN 20 MG DAILY
     Route: 048
     Dates: start: 201012
  6. CORTANCYL [Concomitant]
     Dosage: 10 MG, 1X/DAY
  7. ATARAX                             /00058401/ [Concomitant]
     Dosage: UNK
  8. CONTRAMAL [Concomitant]
     Dosage: UNK
  9. PARIET [Concomitant]
     Dosage: UNK
  10. CREON [Concomitant]
     Dosage: UNK
  11. PRIMPERAN [Concomitant]
     Dosage: UNK
  12. SPASFON /00765801/ [Concomitant]
     Dosage: UNK
  13. IMODIUM [Concomitant]
     Dosage: UNK
  14. ESTREVA [Concomitant]
     Dosage: UNK
  15. ESTIMA [Concomitant]
     Dosage: UNK
  16. CALCIDIA [Concomitant]
     Dosage: UNK
  17. UVEDOSE [Concomitant]
     Dosage: UNK
  18. BISPHOSPHONATES [Concomitant]
     Dosage: UNK

REACTIONS (3)
  - Pancreatic carcinoma metastatic [Not Recovered/Not Resolved]
  - Metastases to liver [Unknown]
  - Lymphopenia [Unknown]
